FAERS Safety Report 8818769 (Version 1)
Quarter: 2012Q4

REPORT INFORMATION
  Report Type: 
  Country: US (occurrence: US)
  Receive Date: 20121002
  Receipt Date: 20121002
  Transmission Date: 20130627
  Serious: No
  Sender: FDA-Public Use
  Company Number: US-COVIDIEN/TYCO HEALTHCARE/MALLINCKRODT-T201201941

PATIENT
  Age: 57 Year
  Sex: Female

DRUGS (3)
  1. EXALGO EXTENDED RELEASE [Suspect]
     Indication: PAIN
     Dosage: 8 mg, qd
     Dates: start: 20120516
  2. KADIAN [Concomitant]
     Indication: PAIN
     Dosage: 30 mg, qd
     Dates: end: 201205
  3. OXYCODONE [Concomitant]
     Indication: BREAKTHROUGH PAIN
     Dosage: 5 mg, tid

REACTIONS (3)
  - Activities of daily living impaired [Not Recovered/Not Resolved]
  - Withdrawal syndrome [Not Recovered/Not Resolved]
  - Drug ineffective [Not Recovered/Not Resolved]
